FAERS Safety Report 5585209-6 (Version None)
Quarter: 2008Q1

REPORT INFORMATION
  Report Type: 
  Country: None (occurrence: None)
  Receive Date: 20080109
  Receipt Date: 20071231
  Transmission Date: 20080703
  Serious: Yes (Other)
  Sender: FDA-Public Use
  Company Number: PHFR2007GB03442

PATIENT
  Age: 40 Year
  Sex: Male

DRUGS (1)
  1. CLOZARIL [Suspect]
     Indication: SCHIZOPHRENIA
     Dosage: UNK, UNK
     Route: 048
     Dates: start: 19941208, end: 20071214

REACTIONS (4)
  - BIOPSY [None]
  - LYMPHOMA [None]
  - NEUTROPENIA [None]
  - PHARYNGEAL OEDEMA [None]
